FAERS Safety Report 20008423 (Version 3)
Quarter: 2021Q4

REPORT INFORMATION
  Report Type: Spontaneous
  Country: IT (occurrence: IT)
  Receive Date: 20211029
  Receipt Date: 20211123
  Transmission Date: 20220303
  Serious: Yes (Death, Hospitalization, Other)
  Sender: FDA-Public Use
  Company Number: IT-CELLTRION INC.-2021IT014622

PATIENT

DRUGS (8)
  1. RITUXIMAB [Suspect]
     Active Substance: RITUXIMAB
     Indication: Mantle cell lymphoma
     Dosage: 375 MG/M2 EVERY 28 DAYS (ON DAY 2)
     Route: 041
  2. RITUXIMAB [Suspect]
     Active Substance: RITUXIMAB
     Dosage: UNK
     Route: 041
  3. RITUXIMAB [Suspect]
     Active Substance: RITUXIMAB
     Dosage: 375 MG/M2, UNKNOWN FREQ. ON DAY 2
     Route: 041
  4. BENDAMUSTINE [Suspect]
     Active Substance: BENDAMUSTINE
     Indication: Mantle cell lymphoma
     Dosage: 70 MG/M2 EVERY 28 DAYS (ON DAY 1-2)
     Route: 065
  5. BENDAMUSTINE HYDROCHLORIDE [Suspect]
     Active Substance: BENDAMUSTINE HYDROCHLORIDE
     Indication: Mantle cell lymphoma
     Dosage: UNK, CYCLIC
     Route: 042
  6. BENDAMUSTINE HYDROCHLORIDE [Suspect]
     Active Substance: BENDAMUSTINE HYDROCHLORIDE
     Dosage: ON DAY 1-2
     Route: 042
  7. PIPERACILLIN AND TAZOBACTAM [Concomitant]
     Active Substance: PIPERACILLIN SODIUM\TAZOBACTAM SODIUM
     Indication: Product used for unknown indication
  8. LEVOFLOXACIN [Concomitant]
     Active Substance: LEVOFLOXACIN

REACTIONS (7)
  - Death [Fatal]
  - Pneumonia cytomegaloviral [Not Recovered/Not Resolved]
  - Aspergillus infection [Unknown]
  - Candida infection [Unknown]
  - Product use issue [Unknown]
  - Off label use [Unknown]
  - Off label use [Unknown]
